FAERS Safety Report 5045288-1 (Version None)
Quarter: 2006Q3

REPORT INFORMATION
  Report Type: 
  Country: None (occurrence: None)
  Receive Date: 20060707
  Receipt Date: 20060622
  Transmission Date: 20061208
  Serious: Yes (Hospitalization, Other)
  Sender: FDA-Public Use
  Company Number: US-AMGEN-STX184052

PATIENT
  Sex: Female

DRUGS (2)
  1. ENBREL [Suspect]
     Indication: RHEUMATOID ARTHRITIS
     Route: 058
     Dates: start: 20060515
  2. ARAVA [Concomitant]
     Dates: start: 20020101

REACTIONS (3)
  - BREAST MASS [None]
  - CHEST DISCOMFORT [None]
  - PALPITATIONS [None]
